FAERS Safety Report 9054879 (Version 1)
Quarter: 2013Q1

REPORT INFORMATION
  Report Type: Report from Study
  Country: IT (occurrence: IT)
  Receive Date: 20130208
  Receipt Date: 20130208
  Transmission Date: 20140127
  Serious: Yes (Hospitalization)
  Sender: FDA-Public Use
  Company Number: IT-ELI_LILLY_AND_COMPANY-IT201011006052

PATIENT
  Age: 66 None
  Sex: Male
  Weight: 86 kg

DRUGS (22)
  1. NECITUMUMAB [Suspect]
     Indication: NON-SMALL CELL LUNG CANCER
     Dosage: 800 MG, UNK
     Dates: start: 20100818
  2. PEMETREXED [Suspect]
     Indication: NON-SMALL CELL LUNG CANCER
     Dosage: 1000 MG, UNK
     Dates: start: 20100818
  3. CISPLATIN [Suspect]
     Indication: NON-SMALL CELL LUNG CANCER
     Dosage: 150 MG, UNK
     Dates: start: 20100818
  4. CARDIOASPIRINA [Concomitant]
     Dosage: 400 MG, QD
     Dates: start: 20100721
  5. LOPRESOR [Concomitant]
     Dates: start: 20100721
  6. TRIATEC [Concomitant]
  7. TOTALIP [Concomitant]
     Dates: start: 20100721
  8. PANTORC [Concomitant]
  9. NITROGLICERINA [Concomitant]
     Dates: start: 20100721
  10. TIKLID [Concomitant]
     Dates: start: 20100721
  11. MICOSTATIN [Concomitant]
     Dosage: UNK, UNK
     Dates: start: 20100819, end: 20100906
  12. PLASIL [Concomitant]
     Dates: start: 20100819, end: 20100906
  13. PLASIL [Concomitant]
     Dates: start: 20100909, end: 20100925
  14. DIFLUCAN [Concomitant]
     Dates: start: 20100825, end: 20100830
  15. DIFLUCAN [Concomitant]
     Dates: start: 20101006, end: 20101010
  16. ROVIGON [Concomitant]
     Dates: start: 20100825, end: 20100830
  17. FUCICORT [Concomitant]
     Dosage: UNK, UNK
     Dates: start: 20100908
  18. PROCTOSEDYL [Concomitant]
     Dates: start: 20101006
  19. ERYTHROPOIETIN [Concomitant]
     Dates: start: 20101110
  20. FOLIC ACID [Concomitant]
  21. VITAMIN B12 [Concomitant]
  22. ASPIRIN [Concomitant]
     Dosage: 100 MG, QD

REACTIONS (3)
  - Rectal haemorrhage [Recovered/Resolved]
  - Anaemia [None]
  - Hypotension [None]
